FAERS Safety Report 13717951 (Version 3)
Quarter: 2017Q4

REPORT INFORMATION
  Report Type: Spontaneous
  Country: US (occurrence: US)
  Receive Date: 20170705
  Receipt Date: 20171020
  Transmission Date: 20180320
  Serious: Yes (Hospitalization, Other)
  Sender: FDA-Public Use
  Company Number: US-PFIZER INC-2017246204

PATIENT
  Age: 78 Year
  Sex: Male

DRUGS (8)
  1. XTANDI [Interacting]
     Active Substance: ENZALUTAMIDE
     Indication: NEOPLASM MALIGNANT
  2. OMEPRAZOLE. [Interacting]
     Active Substance: OMEPRAZOLE
     Indication: NAUSEA
     Dosage: 20 MG, 1X/DAY (ONLY TOOK 8, 4 MONTHS)
  3. GEMFIBROZIL. [Interacting]
     Active Substance: GEMFIBROZIL
     Dosage: 600 MG, 2X/DAY (1X TWICE @ DAY 600 MG)
  4. XTANDI [Interacting]
     Active Substance: ENZALUTAMIDE
     Indication: NEOPLASM MALIGNANT
  5. GEMFIBROZIL. [Suspect]
     Active Substance: GEMFIBROZIL
     Indication: BLOOD CHOLESTEROL INCREASED
     Dosage: 600 MG, 2X/DAY (MORE THAN 20 YEARS)
  6. XTANDI [Interacting]
     Active Substance: ENZALUTAMIDE
     Indication: PROSTATE CANCER
     Dosage: 160 MG, 1X/DAY (4 PILLS ONCE DAILY)
     Dates: start: 201704
  7. OMEPRAZOLE. [Interacting]
     Active Substance: OMEPRAZOLE
     Indication: ABDOMINAL DISCOMFORT
  8. OMEPRAZOLE. [Interacting]
     Active Substance: OMEPRAZOLE
     Indication: DYSPEPSIA

REACTIONS (6)
  - Nausea [Recovered/Resolved]
  - Drug interaction [Recovering/Resolving]
  - Blood potassium decreased [Unknown]
  - Weight decreased [Recovering/Resolving]
  - Fatigue [Recovering/Resolving]
  - Gastric haemorrhage [Recovered/Resolved]

NARRATIVE: CASE EVENT DATE: 20170303
